FAERS Safety Report 16369515 (Version 1)
Quarter: 2019Q2

REPORT INFORMATION
  Report Type: Spontaneous
  Country: FR (occurrence: FR)
  Receive Date: 20190530
  Receipt Date: 20190530
  Transmission Date: 20190711
  Serious: Yes (Other)
  Sender: FDA-Public Use
  Company Number: FR-TEVA-2019-FR-1056049

PATIENT
  Age: 34 Year
  Sex: Female

DRUGS (7)
  1. ALCOOL [Suspect]
     Active Substance: ALCOHOL
     Route: 048
     Dates: start: 2006
  2. CANNABIS [Suspect]
     Active Substance: CANNABIS SATIVA SUBSP. INDICA TOP
     Route: 055
     Dates: start: 2006, end: 2008
  3. KETAMINE [Suspect]
     Active Substance: KETAMINE
     Route: 045
     Dates: start: 2009
  4. DIAZEPAM. [Suspect]
     Active Substance: DIAZEPAM
     Route: 048
  5. TABAC (POUDRE DE) [Suspect]
     Active Substance: TOBACCO LEAF
     Route: 055
  6. COCAINE [Suspect]
     Active Substance: COCAINE
     Route: 045
     Dates: start: 2009
  7. METHADONE [Suspect]
     Active Substance: METHADONE HYDROCHLORIDE
     Indication: DRUG DEPENDENCE
     Route: 048

REACTIONS (2)
  - Drug abuse [Not Recovered/Not Resolved]
  - Cluster headache [Not Recovered/Not Resolved]

NARRATIVE: CASE EVENT DATE: 1992
